FAERS Safety Report 11258572 (Version 1)
Quarter: 2015Q3

REPORT INFORMATION
  Report Type: Spontaneous
  Country: IT (occurrence: None)
  Receive Date: 20150708
  Receipt Date: 20150708
  Transmission Date: 20151125
  Serious: Yes (Hospitalization)
  Sender: FDA-Public Use
  Company Number: IPC201507-000431

PATIENT
  Age: 84 Year
  Sex: Female

DRUGS (1)
  1. ALLOPURINOL (ALLOPURINOL) (ALLOPURINOL) [Suspect]
     Active Substance: ALLOPURINOL
     Indication: HYPERURICAEMIA

REACTIONS (10)
  - Haematuria [None]
  - Proteinuria [None]
  - Tubulointerstitial nephritis [None]
  - Neutrophilia [None]
  - Hypokalaemia [None]
  - Pyelonephritis acute [None]
  - Hypersensitivity vasculitis [None]
  - Metabolic acidosis [None]
  - Eosinophilia [None]
  - Blood creatinine increased [None]
